FAERS Safety Report 10068600 (Version 2)
Quarter: 2014Q2

REPORT INFORMATION
  Report Type: Report from Study
  Country: US (occurrence: US)
  Receive Date: 20140409
  Receipt Date: 20140409
  Transmission Date: 20141212
  Serious: Yes (Other)
  Sender: FDA-Public Use
  Company Number: US-BAYER-2014-048275

PATIENT
  Age: 52 Year
  Sex: Male

DRUGS (1)
  1. STIVARGA [Suspect]
     Indication: COLORECTAL CANCER
     Dosage: 160 MG, QD
     Route: 048
     Dates: start: 201403

REACTIONS (7)
  - Oral pain [None]
  - Fatigue [None]
  - Dysphonia [None]
  - Fatigue [None]
  - Myalgia [None]
  - Glossodynia [None]
  - Aphagia [None]
